FAERS Safety Report 19216233 (Version 1)
Quarter: 2021Q2

REPORT INFORMATION
  Report Type: Spontaneous
  Country: GB (occurrence: GB)
  Receive Date: 20210505
  Receipt Date: 20210505
  Transmission Date: 20210717
  Serious: Yes (Other)
  Sender: FDA-Public Use
  Company Number: GB-TEVA-2021-GB-1906467

PATIENT
  Age: 54 Year
  Sex: Female
  Weight: 80 kg

DRUGS (2)
  1. TRIMETHOPRIM. [Suspect]
     Active Substance: TRIMETHOPRIM
     Indication: URINARY TRACT INFECTION
     Dosage: 200MG
     Route: 048
     Dates: start: 20210421, end: 20210423
  2. SYMBICORT [Concomitant]
     Active Substance: BUDESONIDE\FORMOTEROL FUMARATE DIHYDRATE
     Indication: ILL-DEFINED DISORDER

REACTIONS (3)
  - Nausea [Not Recovered/Not Resolved]
  - Candida infection [Not Recovered/Not Resolved]
  - Adverse drug reaction [Recovering/Resolving]

NARRATIVE: CASE EVENT DATE: 20210421
